FAERS Safety Report 19998099 (Version 1)
Quarter: 2021Q4

REPORT INFORMATION
  Report Type: Spontaneous
  Country: RO (occurrence: RO)
  Receive Date: 20211026
  Receipt Date: 20211026
  Transmission Date: 20220303
  Serious: Yes (Other)
  Sender: FDA-Public Use
  Company Number: RO-009507513-2106ROM003958

PATIENT
  Age: 62 Year
  Sex: Male

DRUGS (3)
  1. PEMETREXED [Suspect]
     Active Substance: PEMETREXED
     Indication: Product used for unknown indication
     Dosage: 800 MILLIGRAM, Q21D (EVERY 21 DAYS)
  2. CARBOPLATIN [Suspect]
     Active Substance: CARBOPLATIN
     Indication: Product used for unknown indication
     Dosage: 600 MILLIGRAM, Q21D (EVERY 21 DAYS)
  3. PEMBROLIZUMAB [Suspect]
     Active Substance: PEMBROLIZUMAB
     Indication: Product used for unknown indication
     Dosage: 200 MILLIGRAM, Q21D (EVERY 21 DAYS)
     Dates: start: 202001

REACTIONS (4)
  - Skin toxicity [Unknown]
  - Immune-mediated thyroiditis [Unknown]
  - Immune-mediated enterocolitis [Unknown]
  - Haematotoxicity [Unknown]

NARRATIVE: CASE EVENT DATE: 20200701
